FAERS Safety Report 19190188 (Version 2)
Quarter: 2021Q2

REPORT INFORMATION
  Report Type: Spontaneous
  Country: US (occurrence: US)
  Receive Date: 20210428
  Receipt Date: 20210509
  Transmission Date: 20210717
  Serious: No
  Sender: FDA-Public Use
  Company Number: US-AMGEN INC.-USASP2021064049

PATIENT
  Age: 54 Year
  Sex: Female

DRUGS (2)
  1. AIMOVIG [Suspect]
     Active Substance: ERENUMAB-AOOE
     Indication: MIGRAINE
     Dosage: 35 MILLIGRAM
     Route: 065
     Dates: start: 202011
  2. AIMOVIG [Suspect]
     Active Substance: ERENUMAB-AOOE
     Dosage: 70 MILLIGRAM
     Route: 065
     Dates: start: 202104

REACTIONS (6)
  - Wrong technique in product usage process [Unknown]
  - Incorrect dose administered [Unknown]
  - Off label use [Unknown]
  - Accidental exposure to product [Unknown]
  - Injection site pain [Not Recovered/Not Resolved]
  - Injury associated with device [Unknown]

NARRATIVE: CASE EVENT DATE: 202011
